FAERS Safety Report 21529298 (Version 1)
Quarter: 2022Q4

REPORT INFORMATION
  Report Type: Spontaneous
  Country: AR (occurrence: AR)
  Receive Date: 20221031
  Receipt Date: 20221031
  Transmission Date: 20230113
  Serious: Yes (Other)
  Sender: FDA-Public Use
  Company Number: AR-SLATE RUN PHARMACEUTICALS-22AR001388

PATIENT

DRUGS (3)
  1. IBUPROFEN [Suspect]
     Active Substance: IBUPROFEN
     Indication: Headache
     Dosage: 600 MILLIGRAM
  2. IBUPROFEN [Suspect]
     Active Substance: IBUPROFEN
     Dosage: 400-600 MILLIGRAM, PRN
  3. ACETAMINOPHEN [Concomitant]
     Active Substance: ACETAMINOPHEN
     Indication: Headache
     Dosage: 1 GRAM, PRN

REACTIONS (4)
  - Orbital compartment syndrome [Recovering/Resolving]
  - Visual field defect [Not Recovered/Not Resolved]
  - Optic ischaemic neuropathy [Recovering/Resolving]
  - Angioedema [Recovering/Resolving]
